FAERS Safety Report 4662257-1 (Version None)
Quarter: 2005Q2

REPORT INFORMATION
  Report Type: 
  Country: None (occurrence: None)
  Receive Date: 20050512
  Receipt Date: 20050504
  Transmission Date: 20051028
  Serious: Yes (Hospitalization)
  Sender: FDA-Public Use
  Company Number: 2005070605

PATIENT
  Age: 53 Year
  Sex: Male
  Weight: 75.6 kg

DRUGS (10)
  1. TIKOSYN [Suspect]
     Indication: ILL-DEFINED DISORDER
  2. CARVEDIOLOL (CARVEDIOLOL) [Concomitant]
  3. DIGOXIN [Concomitant]
  4. FENTANYL [Concomitant]
  5. PANTOPRAZOLE (PATOPRAZOLE) [Concomitant]
  6. VENLAFAXINE HYDROCHLORIDE (VENLAFAZINE HYDROCHLORIDE) [Concomitant]
  7. WARFARIN SODIUM [Concomitant]
  8. CARISOPRODOL [Concomitant]
  9. DIAZEPAM [Concomitant]
  10. MORPHINE SULFATE (MORPHINE SULFATE0 [Concomitant]

REACTIONS (1)
  - INFECTION [None]
